FAERS Safety Report 14130305 (Version 1)
Quarter: 2017Q4

REPORT INFORMATION
  Report Type: Report from Study
  Country: US (occurrence: US)
  Receive Date: 20171026
  Receipt Date: 20171026
  Transmission Date: 20180321
  Serious: Yes (Hospitalization, Other)
  Sender: FDA-Public Use
  Company Number: US-TEVA-818175USA

PATIENT
  Age: 38 Year
  Sex: Female

DRUGS (1)
  1. COPAXONE [Suspect]
     Active Substance: GLATIRAMER ACETATE
     Indication: MULTIPLE SCLEROSIS
     Route: 058
     Dates: start: 20170510

REACTIONS (4)
  - Multiple sclerosis relapse [Unknown]
  - Respiratory arrest [Unknown]
  - Hypotension [Unknown]
  - Cyanosis [Unknown]

NARRATIVE: CASE EVENT DATE: 20170708
